FAERS Safety Report 21491493 (Version 1)
Quarter: 2022Q4

REPORT INFORMATION
  Report Type: Spontaneous
  Country: AT (occurrence: AT)
  Receive Date: 20221021
  Receipt Date: 20221021
  Transmission Date: 20230113
  Serious: Yes (Other)
  Sender: FDA-Public Use
  Company Number: None

PATIENT
  Age: 68 Year
  Sex: Female

DRUGS (7)
  1. ICLUSIG [Suspect]
     Active Substance: PONATINIB
     Indication: Chloroma
     Dosage: 45 MILLIGRAM, QD
     Route: 065
  2. BOSUTINIB [Suspect]
     Active Substance: BOSUTINIB
     Indication: Chloroma
     Dosage: 400 MILLIGRAM, QD
     Route: 065
  3. PALBOCICLIB [Suspect]
     Active Substance: PALBOCICLIB
     Indication: Chloroma
     Dosage: 125 MILLIGRAM, QD
     Route: 065
  4. DASATINIB [Suspect]
     Active Substance: DASATINIB
     Indication: Chloroma
     Dosage: 100 MILLIGRAM, QD
     Route: 065
  5. DASATINIB [Suspect]
     Active Substance: DASATINIB
     Dosage: 50 MILLIGRAM, QD
     Route: 065
  6. DASATINIB [Suspect]
     Active Substance: DASATINIB
     Dosage: 100 MILLIGRAM, QD
     Route: 065
  7. IMATINIB [Suspect]
     Active Substance: IMATINIB
     Indication: Chloroma
     Dosage: 400 MILLIGRAM, QD
     Route: 065

REACTIONS (8)
  - Oedema [Unknown]
  - Drug resistance [Unknown]
  - Dysgeusia [Unknown]
  - Tachycardia [Unknown]
  - Nausea [Unknown]
  - Neutropenia [Recovered/Resolved]
  - Pleural effusion [Unknown]
  - Product use in unapproved indication [Unknown]
